FAERS Safety Report 24623015 (Version 1)
Quarter: 2024Q4

REPORT INFORMATION
  Report Type: Spontaneous
  Country: IR (occurrence: IR)
  Receive Date: 20241115
  Receipt Date: 20241115
  Transmission Date: 20250115
  Serious: Yes (Hospitalization, Other)
  Sender: AMGEN
  Company Number: IR-AMGEN-IRNSP2024224894

PATIENT
  Age: 70 Year
  Sex: Female

DRUGS (1)
  1. REPATHA [Suspect]
     Active Substance: EVOLOCUMAB
     Indication: Product used for unknown indication
     Dosage: UNK
     Route: 065

REACTIONS (7)
  - Unevaluable event [Unknown]
  - Hypotension [Unknown]
  - Weight decreased [Unknown]
  - Cholecystitis [Unknown]
  - Vertigo [Unknown]
  - Drug hypersensitivity [Unknown]
  - Nausea [Unknown]
